FAERS Safety Report 13049955 (Version 2)
Quarter: 2017Q1

REPORT INFORMATION
  Report Type: Report from Study
  Country: US (occurrence: US)
  Receive Date: 20161221
  Receipt Date: 20170130
  Transmission Date: 20170428
  Serious: No
  Sender: FDA-Public Use
  Company Number: US-AMGEN-USASL2016178701

PATIENT
  Sex: Female

DRUGS (2)
  1. ENBREL [Suspect]
     Active Substance: ETANERCEPT
     Indication: RHEUMATOID ARTHRITIS
     Dosage: 50 MG, UNK
     Route: 065
  2. ENBREL [Suspect]
     Active Substance: ETANERCEPT
     Dosage: 50 MG, UNK
     Route: 065
     Dates: start: 20170125

REACTIONS (5)
  - Upper respiratory tract infection [Not Recovered/Not Resolved]
  - Bronchitis [Recovered/Resolved]
  - Muscle spasms [Unknown]
  - Arthralgia [Unknown]
  - Nausea [Not Recovered/Not Resolved]
